FAERS Safety Report 4602722-6 (Version None)
Quarter: 2005Q1

REPORT INFORMATION
  Report Type: 
  Country: None (occurrence: None)
  Receive Date: 20050307
  Receipt Date: 20050218
  Transmission Date: 20050727
  Serious: Yes (Other)
  Sender: FDA-Public Use
  Company Number: 2005034158

PATIENT
  Sex: Male
  Weight: 92 kg

DRUGS (15)
  1. CARDULAR PP (DOXAZOSIN) [Suspect]
     Indication: HYPERTENSION
     Dosage: 4 MG (4 MG, DAILY), ORAL
     Route: 048
     Dates: start: 20040624, end: 20040703
  2. CLOPIDOGREL BISULFATE [Concomitant]
  3. ATORVASTATIN (ATORVASTAIN) [Concomitant]
  4. DIMETICONE (DIMETICONE) [Concomitant]
  5. CALCIUM ACETATE (CALCIUM ACETATE) [Concomitant]
  6. METOPROLOL SUCCINATE [Concomitant]
  7. AMLODIPINE BESYLATE [Concomitant]
  8. ENALAPRIL MALEATE [Concomitant]
  9. FUROSEMIDE [Concomitant]
  10. ASPIRIN [Concomitant]
  11. FERROGLYCINE SULFATE COMPLEX (FERROGLYCINE SULFATE COMPLEX) [Concomitant]
  12. PREDNISONE [Concomitant]
  13. ESOMEPRAZOLE (ESOMEPRAZOLE) [Concomitant]
  14. COLECALCIFEROL (COLECALCIFEROL) [Concomitant]
  15. EPOETIN ALFA (EPOETIN ALFA) [Concomitant]

REACTIONS (1)
  - AGRANULOCYTOSIS [None]
